FAERS Safety Report 11821901 (Version 1)
Quarter: 2015Q4

REPORT INFORMATION
  Report Type: Spontaneous
  Country: US (occurrence: US)
  Receive Date: 20151210
  Receipt Date: 20151210
  Transmission Date: 20160305
  Serious: No
  Sender: FDA-Public Use
  Company Number: US-JNJFOC-20150723690

PATIENT
  Age: 82 Year
  Sex: Female

DRUGS (1)
  1. IMBRUVICA [Suspect]
     Active Substance: IBRUTINIB
     Indication: CHRONIC LYMPHOCYTIC LEUKAEMIA
     Route: 048
     Dates: start: 20150506

REACTIONS (13)
  - Asthenia [Unknown]
  - Skin discolouration [Unknown]
  - Kidney infection [Unknown]
  - Bedridden [Unknown]
  - Fatigue [Unknown]
  - Vomiting [Unknown]
  - Urinary incontinence [Unknown]
  - Somnolence [Unknown]
  - Retching [Unknown]
  - Neuropathy peripheral [Unknown]
  - Back pain [Unknown]
  - Gastrooesophageal reflux disease [Unknown]
  - Muscular weakness [Unknown]

NARRATIVE: CASE EVENT DATE: 2015
